FAERS Safety Report 13614994 (Version 1)
Quarter: 2017Q2

REPORT INFORMATION
  Report Type: Report from Study
  Country: US (occurrence: US)
  Receive Date: 20170606
  Receipt Date: 20170606
  Transmission Date: 20170830
  Serious: Yes (Life-Threatening)
  Sender: FDA-Public Use
  Company Number: US-BION-006359

PATIENT
  Age: 24 Year
  Sex: Female

DRUGS (1)
  1. LOPERAMIDE HYDROCHLORIDE. [Suspect]
     Active Substance: LOPERAMIDE HYDROCHLORIDE

REACTIONS (8)
  - Tachycardia [Unknown]
  - Hypoxia [Unknown]
  - Respiratory depression [Unknown]
  - Lethargy [Unknown]
  - Drug use disorder [Not Recovered/Not Resolved]
  - Respiratory arrest [Unknown]
  - Pyrexia [Unknown]
  - Somnolence [Unknown]
